FAERS Safety Report 8935101 (Version 2)
Quarter: 2012Q4

REPORT INFORMATION
  Report Type: 
  Country: US (occurrence: US)
  Receive Date: 20121129
  Receipt Date: 20121228
  Transmission Date: 20130627
  Serious: Yes (Hospitalization)
  Sender: FDA-Public Use
  Company Number: US-MYLANLABS-2012S1021392

PATIENT
  Age: 53 Year
  Sex: Male
  Weight: 82.1 kg

DRUGS (16)
  1. CLOZAPINE TABLETS [Suspect]
     Indication: AGITATION
     Route: 048
     Dates: start: 20120912, end: 20120925
  2. CLOZAPINE TABLETS [Interacting]
     Indication: AGGRESSION
     Route: 048
     Dates: start: 20120912, end: 20120925
  3. CLOZAPINE TABLETS [Interacting]
     Indication: AGITATION
     Route: 048
     Dates: end: 20120925
  4. CLOZAPINE TABLETS [Interacting]
     Indication: AGGRESSION
     Route: 048
     Dates: end: 20120925
  5. RISPERDAL [Suspect]
  6. CLONAZEPAM [Suspect]
  7. FLUTICASONE [Concomitant]
  8. PAROXETINE [Concomitant]
  9. OXYBUTYNIN [Concomitant]
  10. VITAMINE E [Concomitant]
  11. CLONAZEPAM [Concomitant]
  12. LAMOTRIGINE [Concomitant]
  13. CLORAZEPATE DIPOTASSIUM [Concomitant]
  14. PROPRANOLOL [Concomitant]
  15. RISPERIDONE [Concomitant]
  16. VITAMIN D [Concomitant]

REACTIONS (6)
  - Drug interaction [Recovered/Resolved]
  - Mental status changes [Recovered/Resolved]
  - Ataxia [Recovered/Resolved]
  - Confusional state [Recovered/Resolved]
  - Urinary tract infection [Recovered/Resolved]
  - Sedation [Recovered/Resolved]
